FAERS Safety Report 17041166 (Version 1)
Quarter: 2019Q4

REPORT INFORMATION
  Report Type: Spontaneous
  Country: US (occurrence: US)
  Receive Date: 20191118
  Receipt Date: 20191118
  Transmission Date: 20200122
  Serious: No
  Sender: FDA-Public Use
  Company Number: US-CIPLA LTD.-2019US06606

PATIENT

DRUGS (4)
  1. METOLAR (METOPROLOL SUCCINATE) [Suspect]
     Active Substance: METOPROLOL SUCCINATE
     Indication: BLOOD PRESSURE ABNORMAL
     Dosage: 25 MILLIGRAM, BID
     Route: 048
  2. METOLAR (METOPROLOL SUCCINATE) [Suspect]
     Active Substance: METOPROLOL SUCCINATE
     Dosage: 25 MILLIGRAM, BID
     Route: 048
     Dates: start: 20190921
  3. METOLAR (METOPROLOL SUCCINATE) [Suspect]
     Active Substance: METOPROLOL SUCCINATE
     Dosage: 25 MILLIGRAM, BID
     Route: 048
  4. METOLAR (METOPROLOL SUCCINATE) [Suspect]
     Active Substance: METOPROLOL SUCCINATE
     Dosage: 25 MILLIGRAM, BID
     Route: 048
     Dates: start: 20190727

REACTIONS (4)
  - Oropharyngeal pain [Recovered/Resolved]
  - Eructation [Recovered/Resolved]
  - Product quality issue [Unknown]
  - Gastric disorder [Recovered/Resolved]

NARRATIVE: CASE EVENT DATE: 20190727
